FAERS Safety Report 22615586 (Version 2)
Quarter: 2023Q2

REPORT INFORMATION
  Report Type: Spontaneous
  Country: IN (occurrence: IN)
  Receive Date: 20230619
  Receipt Date: 20230621
  Transmission Date: 20230721
  Serious: Yes (Death, Hospitalization, Other)
  Sender: FDA-Public Use
  Company Number: IN-Calliditas-2023CAL00550

PATIENT

DRUGS (1)
  1. BUDESONIDE [Suspect]
     Active Substance: BUDESONIDE
     Indication: COVID-19
     Dosage: TWO PUFFS TWICE DAILY FOR 7 DAYS, WITH EACH PUFF CONTAINING BUDESONIDE 400 MCG PLUS FORMOTEROL 6 MCG
     Route: 055

REACTIONS (3)
  - Hospitalisation [Unknown]
  - Mechanical ventilation [Unknown]
  - Death [Fatal]
